FAERS Safety Report 11427156 (Version 9)
Quarter: 2019Q1

REPORT INFORMATION
  Report Type: Report from Study
  Country: JP (occurrence: JP)
  Receive Date: 20150827
  Receipt Date: 20190122
  Transmission Date: 20190417
  Serious: Yes (Other)
  Sender: FDA-Public Use
  Company Number: JP-BRISTOL-MYERS SQUIBB COMPANY-BMS-2014-005416

PATIENT
  Age: 58 Year
  Sex: Female
  Weight: 46 kg

DRUGS (4)
  1. NIVOLUMAB [Suspect]
     Active Substance: NIVOLUMAB
     Indication: PRODUCT USED FOR UNKNOWN INDICATION
     Dosage: 2 MG/KG, UNK
     Route: 041
     Dates: start: 201412, end: 201412
  2. NIVOLUMAB [Suspect]
     Active Substance: NIVOLUMAB
     Indication: MALIGNANT MELANOMA
     Dosage: 2 MG/KG (95 MG)
     Route: 041
     Dates: start: 20141202, end: 20141202
  3. NIVOLUMAB [Suspect]
     Active Substance: NIVOLUMAB
     Indication: PRODUCT USED FOR UNKNOWN INDICATION
     Dosage: 2 MG/KG, UNK
     Route: 041
     Dates: start: 20150108, end: 20150831
  4. NIVOLUMAB [Suspect]
     Active Substance: NIVOLUMAB
     Indication: PRODUCT USED FOR UNKNOWN INDICATION
     Dosage: 2 MG/KG, UNK
     Route: 041
     Dates: start: 20141224, end: 20141224

REACTIONS (8)
  - Pneumonia [Unknown]
  - Goitre [Not Recovered/Not Resolved]
  - Pruritus generalised [Recovering/Resolving]
  - Hypothyroidism [Recovering/Resolving]
  - Somnolence [Unknown]
  - Hyperthyroidism [Recovered/Resolved]
  - Malignant neoplasm progression [Unknown]
  - Thyroiditis [Unknown]

NARRATIVE: CASE EVENT DATE: 20141205
